FAERS Safety Report 9436991 (Version 1)
Quarter: 2013Q3

REPORT INFORMATION
  Report Type: Spontaneous
  Country: US (occurrence: US)
  Receive Date: 20130802
  Receipt Date: 20130802
  Transmission Date: 20140515
  Serious: Yes (Other)
  Sender: FDA-Public Use
  Company Number: US-PFIZER INC-2013224556

PATIENT
  Age: 42 Year
  Sex: Male
  Weight: 117.91 kg

DRUGS (4)
  1. LYRICA [Suspect]
     Indication: ERYTHROMELALGIA
     Dosage: 150 MG, 2X/DAY
     Route: 048
     Dates: end: 20130717
  2. MORPHINE SULFATE [Interacting]
     Dosage: UNK
  3. PROPANOLOL HCL [Interacting]
     Dosage: UNK
  4. DILAUDID [Interacting]
     Dosage: UNK

REACTIONS (4)
  - Off label use [Unknown]
  - Drug interaction [Unknown]
  - Rhabdomyolysis [Unknown]
  - Blood creatine phosphokinase increased [Unknown]
